FAERS Safety Report 15215750 (Version 1)
Quarter: 2018Q3

REPORT INFORMATION
  Report Type: Spontaneous
  Country: US (occurrence: US)
  Receive Date: 20180730
  Receipt Date: 20180730
  Transmission Date: 20181010
  Serious: Yes (Hospitalization, Other)
  Sender: FDA-Public Use
  Company Number: US-FRESENIUS KABI-FK201808242

PATIENT
  Age: 31 Year
  Sex: Male

DRUGS (4)
  1. GLUCOSE (MANUFACTURER UNKNOWN) [Suspect]
     Active Substance: DEXTROSE
     Indication: BLOOD SODIUM INCREASED
     Route: 065
  2. INSULIN [Suspect]
     Active Substance: INSULIN NOS
     Indication: TYPE 2 DIABETES MELLITUS
  3. SODIUM CHLORIDE (MANUFACTURER UNKNOWN) [Suspect]
     Active Substance: SODIUM CHLORIDE
     Indication: PRODUCT USED FOR UNKNOWN INDICATION
     Route: 042
  4. SODIUM CHLORIDE (MANUFACTURER UNKNOWN) [Suspect]
     Active Substance: SODIUM CHLORIDE
     Dosage: 200?250 ML/HOUR
     Route: 042

REACTIONS (8)
  - Peroneal nerve palsy [Recovering/Resolving]
  - Facial paralysis [Recovering/Resolving]
  - Post-traumatic neck syndrome [Recovering/Resolving]
  - Asthenia [Recovering/Resolving]
  - Pupils unequal [Recovering/Resolving]
  - Brain oedema [Recovering/Resolving]
  - Blood sodium decreased [Recovered/Resolved]
  - Hypernatraemia [Recovered/Resolved]
